FAERS Safety Report 11459470 (Version 2)
Quarter: 2015Q3

REPORT INFORMATION
  Report Type: Spontaneous
  Country: US (occurrence: None)
  Receive Date: 20150904
  Receipt Date: 20150916
  Transmission Date: 20151125
  Serious: Yes (Hospitalization, Other)
  Sender: FDA-Public Use
  Company Number: US-MDT-ADR-2015-01711

PATIENT
  Age: 59 Year
  Sex: Female

DRUGS (1)
  1. BACLOFEN INTRATHECAL UNK [Suspect]
     Active Substance: BACLOFEN
     Dosage: UNK

REACTIONS (5)
  - Malaise [None]
  - Tachycardia [None]
  - Sepsis [None]
  - Pyrexia [None]
  - Muscle spasticity [None]
